FAERS Safety Report 6076270-3 (Version None)
Quarter: 2009Q1

REPORT INFORMATION
  Report Type: 
  Country: None (occurrence: None)
  Receive Date: 20090209
  Receipt Date: 20090123
  Transmission Date: 20090719
  Serious: Yes (Hospitalization)
  Sender: FDA-Public Use
  Company Number: DSA_33159_2009

PATIENT
  Sex: Female

DRUGS (23)
  1. BI-TILDIEM (BI TILDIEM DILTIAZEM HYDROCHLORIDE) 120 MG (NOT SPECIFIED) [Suspect]
     Indication: ATRIAL FIBRILLATION
     Dosage: 120 MG BID ORAL
     Route: 048
  2. TRIATEC /00885601/ (TRIATEC RAMIPRIL) [Suspect]
     Indication: DRUG USE FOR UNKNOWN INDICATION
     Dosage: 2.5 MG QD ORAL
     Route: 048
  3. METHOTREXATE [Suspect]
     Indication: SARCOIDOSIS
     Dosage: 15 MG 1X/WEEK ORAL
     Route: 048
     Dates: start: 20080308, end: 20081201
  4. DILATRANE /00012201/ (DILATRANE ROSUVASTATIN) (NOT SPECIFIED) [Suspect]
     Indication: DRUG USE FOR UNKNOWN INDICATION
     Dosage: 200 MG BID ORAL
     Route: 048
  5. CORDARONE [Concomitant]
  6. PREVISCAN [Concomitant]
  7. VENTOLIN [Concomitant]
  8. SERETIDE [Concomitant]
  9. AERIUS [Concomitant]
  10. ACTONEL [Concomitant]
  11. OGASTORO [Concomitant]
  12. IMOVANE [Concomitant]
  13. DEBRIDAT [Concomitant]
  14. FORLAX [Concomitant]
  15. SPASFON [Concomitant]
  16. XANAX [Concomitant]
  17. DAFLON [Concomitant]
  18. SPECIAFOLDINE [Concomitant]
  19. EFFERALGAN [Concomitant]
  20. SOLUPRED [Concomitant]
  21. DIFFU K [Concomitant]
  22. TRANSILANE [Concomitant]
  23. CRESTOR [Suspect]
     Indication: DRUG USE FOR UNKNOWN INDICATION
     Dosage: DF ORAL
     Route: 048

REACTIONS (7)
  - ATRIAL FIBRILLATION [None]
  - BRONCHITIS [None]
  - CARDIAC FAILURE [None]
  - COUGH [None]
  - DYSPNOEA [None]
  - LUNG DISORDER [None]
  - PRODUCTIVE COUGH [None]
